FAERS Safety Report 4458483-7 (Version None)
Quarter: 2004Q3

REPORT INFORMATION
  Report Type: 
  Country: None (occurrence: None)
  Receive Date: 20040922
  Receipt Date: 20040407
  Transmission Date: 20050211
  Serious: Yes (Hospitalization)
  Sender: FDA-Public Use
  Company Number: US-SHR-04-023699

PATIENT
  Sex: Female

DRUGS (1)
  1. BETASERON [Suspect]
     Indication: MULTIPLE SCLEROSIS
     Dosage: ONE DOSE, SUBCUTANEOUS
     Route: 058
     Dates: start: 20020101, end: 20020101

REACTIONS (1)
  - MULTIPLE SCLEROSIS [None]
